FAERS Safety Report 9413685 (Version 1)
Quarter: 2013Q3

REPORT INFORMATION
  Report Type: Spontaneous
  Country: None (occurrence: None)
  Receive Date: 20130708
  Receipt Date: 20130708
  Transmission Date: 20140515
  Serious: Yes (Other)
  Sender: FDA-Public Use
  Company Number: 09-AUR-09635

PATIENT
  Age: 68 Year
  Sex: Female

DRUGS (1)
  1. GABAPENTIN (GABAPENTIN) [Suspect]
     Indication: BACK PAIN

REACTIONS (5)
  - Chorea [None]
  - Ataxia [None]
  - Cerebellar syndrome [None]
  - Cerebellar syndrome [None]
  - Cerebral microangiopathy [None]
